FAERS Safety Report 20743142 (Version 5)
Quarter: 2022Q4

REPORT INFORMATION
  Report Type: Spontaneous
  Country: DE (occurrence: DE)
  Receive Date: 20220425
  Receipt Date: 20221109
  Transmission Date: 20230113
  Serious: Yes (Death, Life-Threatening, Hospitalization, Disabling, Other)
  Sender: FDA-Public Use
  Company Number: DE-NOVARTISPH-NVSC2022DE083615

PATIENT
  Age: 61 Year
  Sex: Female
  Weight: 60 kg

DRUGS (7)
  1. GILENYA [Suspect]
     Active Substance: FINGOLIMOD HYDROCHLORIDE
     Indication: Multiple sclerosis
     Dosage: 0.5 MG
     Route: 065
     Dates: start: 20130903, end: 20220404
  2. GILENYA [Suspect]
     Active Substance: FINGOLIMOD HYDROCHLORIDE
     Indication: Relapsing multiple sclerosis
  3. TYSABRI [Suspect]
     Active Substance: NATALIZUMAB
     Indication: Multiple sclerosis
     Dosage: 300 MG, Q4W
     Route: 042
     Dates: start: 20090601
  4. TYSABRI [Suspect]
     Active Substance: NATALIZUMAB
     Dosage: UNK
     Route: 042
     Dates: start: 20090721
  5. TYSABRI [Suspect]
     Active Substance: NATALIZUMAB
     Dosage: UNK
     Route: 042
     Dates: start: 2010
  6. TYSABRI [Suspect]
     Active Substance: NATALIZUMAB
     Dosage: 300 MG, Q4W
     Route: 017
     Dates: end: 20110505
  7. TYSABRI [Suspect]
     Active Substance: NATALIZUMAB
     Dosage: UNK
     Route: 042
     Dates: end: 2013

REACTIONS (6)
  - Progressive multifocal leukoencephalopathy [Fatal]
  - Aphasia [Fatal]
  - Quadriparesis [Fatal]
  - Gait disturbance [Fatal]
  - Cerebrovascular accident [Unknown]
  - Central nervous system lesion [Unknown]

NARRATIVE: CASE EVENT DATE: 20220321
